FAERS Safety Report 10146847 (Version 1)
Quarter: 2014Q2

REPORT INFORMATION
  Report Type: Spontaneous
  Country: JP (occurrence: JP)
  Receive Date: 20140501
  Receipt Date: 20140501
  Transmission Date: 20141212
  Serious: Yes (Other)
  Sender: FDA-Public Use
  Company Number: PHHY2014JP051468

PATIENT
  Age: 54 Year
  Sex: Female

DRUGS (1)
  1. MENOAID COMBIPTACH [Suspect]
     Indication: HORMONE REPLACEMENT THERAPY
     Dosage: 1 DF, 2 PATCHES WEEKLY
     Route: 062
     Dates: start: 20090701, end: 20120525

REACTIONS (3)
  - Pigmentation disorder [Not Recovered/Not Resolved]
  - Metrorrhagia [Recovering/Resolving]
  - Application site erythema [Not Recovered/Not Resolved]
